FAERS Safety Report 6856037-6 (Version None)
Quarter: 2010Q3

REPORT INFORMATION
  Report Type: 
  Country: None (occurrence: None)
  Receive Date: 20100719
  Receipt Date: 20100713
  Transmission Date: 20110219
  Serious: Yes (Other)
  Sender: FDA-Public Use
  Company Number: DE-B.I. PHARMACEUTICALS,INC./RIDGEFIELD-2010-DE-02060DE

PATIENT
  Sex: Female
  Weight: 45 kg

DRUGS (14)
  1. ATROVENT [Suspect]
     Dosage: 250MCG/2ML
     Route: 055
  2. ATROVENT [Suspect]
     Dosage: AS NEEDED 2 PUFFS
  3. DIOVAN [Concomitant]
     Indication: BLOOD PRESSURE
     Dosage: 1 ANZ
  4. DECORTIN H 10 MG [Concomitant]
     Indication: BRONCHIAL DISORDER
     Dosage: 2 ANZ
  5. NITRENDIPIN10 MG [Concomitant]
     Indication: BLOOD PRESSURE
     Dosage: 1 ANZ
  6. COUMADIN [Concomitant]
     Indication: HYDRAEMIA
     Dosage: 1.25 ANZ
  7. MCP HEXAL 4MG/ML [Concomitant]
     Dosage: 1-1-1 10 DROPS
  8. NOVANIMSULFON 500MG/ML [Concomitant]
     Dosage: 1-1-1 30 DROPS
  9. TRIMATERON COMP [Concomitant]
     Indication: DEHYDRATION
     Dosage: 50 MG
  10. ACTONEL [Concomitant]
     Dosage: 35 MG
  11. NORSPAN 5 MG [Concomitant]
     Dosage: CHANGE ALL 7 DAYS
  12. SEREVENT SPRAY [Concomitant]
     Dosage: AS NEEDED 2 PUFFS
  13. ALBUTEROL [Concomitant]
     Dosage: AS NEEDED 2 PUFFS
  14. FOSAMAX [Concomitant]
     Dosage: 1 TABLET WEEKLY

REACTIONS (2)
  - BRONCHOSPASM [None]
  - CHOKING SENSATION [None]
